FAERS Safety Report 6672017-8 (Version None)
Quarter: 2010Q2

REPORT INFORMATION
  Report Type: 
  Country: None (occurrence: None)
  Receive Date: 20100406
  Receipt Date: 20100304
  Transmission Date: 20101027
  Serious: Yes (Death)
  Sender: FDA-Public Use
  Company Number: FKO201000092

PATIENT
  Age: 16 Month
  Sex: Female

DRUGS (5)
  1. EPIRUBICIN (EPIRUBICIN HYDROCHLORIDE) [Suspect]
     Indication: ACUTE MYELOID LEUKAEMIA
  2. VINCRISTINE [Concomitant]
  3. CYTARABINE [Concomitant]
  4. IDARUBICIN HCL [Concomitant]
  5. ETOPOSIDE (ETOPOSIDIE) [Concomitant]

REACTIONS (6)
  - ESCHERICHIA SEPSIS [None]
  - LEUKAEMIA CUTIS [None]
  - NEUTROPENIA [None]
  - PERICARDIAL EFFUSION [None]
  - SUPERIOR VENA CAVAL OCCLUSION [None]
  - TUMOUR LYSIS SYNDROME [None]
